FAERS Safety Report 5426768-3 (Version None)
Quarter: 2007Q3

REPORT INFORMATION
  Report Type: 
  Country: None (occurrence: None)
  Receive Date: 20070731
  Receipt Date: 20070507
  Transmission Date: 20080115
  Serious: No
  Sender: FDA-Public Use
  Company Number: 2007PV032600

PATIENT
  Age: 75 Year
  Sex: Male
  Weight: 128.3 kg

DRUGS (22)
  1. EXENATIDE(EXENATIDE) PEN,DISPOSABLE [Suspect]
     Indication: TYPE 2 DIABETES MELLITUS
     Dosage: 5 UG, 2/D, SUBCUTANEOUS 10 UG, 2/D
     Route: 058
     Dates: start: 20060713, end: 20060101
  2. EXENATIDE(EXENATIDE) PEN,DISPOSABLE [Suspect]
     Indication: TYPE 2 DIABETES MELLITUS
     Dosage: 5 UG, 2/D, SUBCUTANEOUS 10 UG, 2/D
     Route: 058
     Dates: start: 20060731, end: 20070327
  3. ZIAC [Concomitant]
  4. ASPIRIN [Concomitant]
  5. ZOCOR [Concomitant]
  6. ZANTAC 150 [Concomitant]
  7. STRASSTABS PLUS ZINC [Concomitant]
  8. ACTOS [Concomitant]
  9. LASIX [Concomitant]
  10. BENICAR [Concomitant]
  11. AVANDIA [Concomitant]
  12. TUMS [Concomitant]
  13. MAALOX [Concomitant]
  14. CALAN [Concomitant]
  15. IMDUR [Concomitant]
  16. MICRONASE [Concomitant]
  17. LOMOTIL [Concomitant]
  18. GAVISCON [Concomitant]
  19. VICODIN [Concomitant]
  20. ADVAIR DISKUS 100/50 [Concomitant]
  21. VITAMIN D [Concomitant]
  22. VERAPAMIL [Concomitant]

REACTIONS (29)
  - ANXIETY [None]
  - ASTHENIA [None]
  - BACK PAIN [None]
  - BLOOD GLUCOSE DECREASED [None]
  - BLOOD PRESSURE DECREASED [None]
  - BURNING SENSATION [None]
  - CHEST DISCOMFORT [None]
  - DECREASED APPETITE [None]
  - DIARRHOEA [None]
  - DIZZINESS [None]
  - DYSPNOEA [None]
  - FALL [None]
  - FEAR [None]
  - GASTROOESOPHAGEAL REFLUX DISEASE [None]
  - HYPOACUSIS [None]
  - HYPOTENSION [None]
  - LYMPHOCYTE COUNT DECREASED [None]
  - MALAISE [None]
  - MONOCYTE COUNT INCREASED [None]
  - NAUSEA [None]
  - NON-CARDIAC CHEST PAIN [None]
  - OEDEMA [None]
  - PAIN [None]
  - PAIN OF SKIN [None]
  - PULMONARY OEDEMA [None]
  - RENAL FAILURE [None]
  - SCIATICA [None]
  - VOMITING [None]
  - WEIGHT DECREASED [None]
